FAERS Safety Report 10751098 (Version 1)
Quarter: 2015Q1

REPORT INFORMATION
  Report Type: Spontaneous
  Country: US (occurrence: None)
  Receive Date: 20150129
  Receipt Date: 20150129
  Transmission Date: 20150721
  Serious: Yes (Other)
  Sender: FDA-Public Use
  Company Number: None

PATIENT
  Age: 51 Year
  Sex: Female
  Weight: 156.49 kg

DRUGS (1)
  1. HUMIRA [Suspect]
     Active Substance: ADALIMUMAB
     Indication: PROSTATIC SPECIFIC ANTIGEN
     Dosage: Q14DAYS
     Route: 058
     Dates: start: 20141001, end: 20141101

REACTIONS (3)
  - Psoriatic arthropathy [None]
  - Staphylococcal infection [None]
  - Cellulitis [None]

NARRATIVE: CASE EVENT DATE: 20141101
